FAERS Safety Report 8022750-0 (Version None)
Quarter: 2012Q1

REPORT INFORMATION
  Report Type: 
  Country: None (occurrence: None)
  Receive Date: 20120104
  Receipt Date: 20111228
  Transmission Date: 20120608
  Serious: Yes (Other)
  Sender: FDA-Public Use
  Company Number: US-TEVA-261437USA

PATIENT
  Sex: Female

DRUGS (4)
  1. ETONOGESTREL [Concomitant]
     Indication: CONTRACEPTION
  2. COPAXONE [Suspect]
     Indication: MULTIPLE SCLEROSIS
     Dosage: 20 MILLIGRAM;
     Route: 058
     Dates: start: 20091231, end: 20111129
  3. DYAZIDE [Concomitant]
     Dosage: 3.5/25MG
     Route: 048
  4. BACLOFEN [Concomitant]
     Indication: MUSCLE SPASTICITY
     Dosage: UP TO 4X DAILY
     Route: 048

REACTIONS (1)
  - COLON CANCER STAGE IV [None]
